FAERS Safety Report 18865862 (Version 1)
Quarter: 2021Q1

REPORT INFORMATION
  Report Type: Spontaneous
  Country: US (occurrence: US)
  Receive Date: 20210209
  Receipt Date: 20210209
  Transmission Date: 20210420
  Serious: Yes (Other)
  Sender: FDA-Public Use
  Company Number: US-GLAXOSMITHKLINE-US2021GSK033116

PATIENT
  Sex: Male

DRUGS (4)
  1. RANITIDINE. [Suspect]
     Active Substance: RANITIDINE
     Dosage: 75 MG, WE
     Route: 065
     Dates: start: 2001, end: 2015
  2. RANITIDINE. [Suspect]
     Active Substance: RANITIDINE
     Dosage: 75 MG, WE
     Route: 065
     Dates: start: 2001, end: 2015
  3. ZANTAC [Suspect]
     Active Substance: RANITIDINE HYDROCHLORIDE
     Dosage: 75 MG, WE
     Route: 065
     Dates: start: 2001, end: 2015
  4. ZANTAC [Suspect]
     Active Substance: RANITIDINE HYDROCHLORIDE
     Dosage: 75 MG, WE
     Route: 065
     Dates: start: 2001, end: 2015

REACTIONS (1)
  - Pancreatic carcinoma [Unknown]
